FAERS Safety Report 8410567-4 (Version None)
Quarter: 2012Q2

REPORT INFORMATION
  Report Type: 
  Country: None (occurrence: None)
  Receive Date: 20120605
  Receipt Date: 20120601
  Transmission Date: 20120825
  Serious: Yes (Life-Threatening)
  Sender: FDA-Public Use
  Company Number: US-BAYER-2012-019432

PATIENT
  Age: 23 Year
  Sex: Female

DRUGS (11)
  1. YASMIN [Suspect]
     Dosage: UNK
     Dates: start: 20090101
  2. ROCEPHIN [Concomitant]
  3. VERSED [Concomitant]
     Dosage: UNK
     Dates: start: 20081203
  4. IBUPROFEN [Concomitant]
     Dosage: 800 MG, UNK
     Route: 048
     Dates: start: 20081203
  5. DOXYCYCLINE [Concomitant]
     Dosage: 100 MG, BID FOR 7 DAYS
     Route: 048
     Dates: start: 20081203
  6. INSULIN [Concomitant]
  7. ACYCLOVIR [Concomitant]
  8. YAZ [Suspect]
     Dosage: UNK
     Dates: start: 20090101
  9. CALCIUM CARBONATE [Concomitant]
  10. ZITHROMAX [Concomitant]
  11. FENTANYL [Concomitant]
     Dosage: UNK
     Dates: start: 20081203

REACTIONS (1)
  - CARDIAC ARREST [None]
